FAERS Safety Report 6893016-7 (Version None)
Quarter: 2010Q3

REPORT INFORMATION
  Report Type: 
  Country: None (occurrence: None)
  Receive Date: 20100731
  Receipt Date: 20090126
  Transmission Date: 20110219
  Serious: No
  Sender: FDA-Public Use
  Company Number: US-PFIZER INC-2008151116

PATIENT
  Sex: Female

DRUGS (1)
  1. NORVASC [Suspect]
     Dosage: 10MG
     Dates: start: 20000101

REACTIONS (3)
  - MEMORY IMPAIRMENT [None]
  - NASOPHARYNGITIS [None]
  - POOR QUALITY SLEEP [None]
